FAERS Safety Report 7456216-3 (Version None)
Quarter: 2011Q2

REPORT INFORMATION
  Report Type: 
  Country: None (occurrence: None)
  Receive Date: 20110503
  Receipt Date: 20110418
  Transmission Date: 20111010
  Serious: Yes (Hospitalization)
  Sender: FDA-Public Use
  Company Number: NO-TEVA-278506ISR

PATIENT
  Sex: Male

DRUGS (1)
  1. METHOTREXATE [Suspect]
     Indication: PSORIASIS
     Dosage: PATIENT HAS MISTAKENLY TAKEN 10 MG PR WEEK FOR TWO FOLLOWING WEEKS SOME WEEKS PRIOR TO ADMISSION
     Route: 048

REACTIONS (4)
  - FOLATE DEFICIENCY [None]
  - INCORRECT DOSE ADMINISTERED [None]
  - VITAMIN B12 DEFICIENCY [None]
  - ANAEMIA MEGALOBLASTIC [None]
